FAERS Safety Report 23305674 (Version 1)
Quarter: 2023Q4

REPORT INFORMATION
  Report Type: Spontaneous
  Country: CN (occurrence: CN)
  Receive Date: 20231218
  Receipt Date: 20231218
  Transmission Date: 20240110
  Serious: Yes (Hospitalization)
  Sender: FDA-Public Use
  Company Number: CN-SHANGHAI JUNSHI BIOSCIENCES CO., LTD.-CN2023008832

PATIENT

DRUGS (5)
  1. TORIPALIMAB [Suspect]
     Active Substance: TORIPALIMAB
     Indication: Lymphoma
     Dosage: 240 MG (D0)
     Route: 041
     Dates: start: 20230719, end: 20230818
  2. CISPLATIN [Suspect]
     Active Substance: CISPLATIN
     Indication: Lymphoma
     Dosage: 40 MG, D1-D2, QD
     Route: 041
     Dates: start: 20230719, end: 20230818
  3. CISPLATIN [Suspect]
     Active Substance: CISPLATIN
     Dosage: 30 MG, D3, QD
     Route: 041
  4. FLUOROURACIL [Suspect]
     Active Substance: FLUOROURACIL
     Indication: Lymphoma
     Dosage: 1.0 G,D1-D5, QD
     Route: 041
     Dates: start: 20230719, end: 20230818
  5. DOCETAXEL [Suspect]
     Active Substance: DOCETAXEL\DOCETAXEL ANHYDROUS
     Indication: Lymphoma
     Dosage: 120 MG (D1)
     Route: 041
     Dates: start: 20230719, end: 20230818

REACTIONS (2)
  - Myelosuppression [Recovering/Resolving]
  - Off label use [Unknown]

NARRATIVE: CASE EVENT DATE: 20230818
